FAERS Safety Report 20139934 (Version 1)
Quarter: 2021Q4

REPORT INFORMATION
  Report Type: Spontaneous
  Country: US (occurrence: None)
  Receive Date: 20211201
  Receipt Date: 20211201
  Transmission Date: 20220303
  Serious: Yes (Death)
  Sender: FDA-Public Use
  Company Number: None

PATIENT
  Age: 75 Year
  Sex: Male
  Weight: 69.9 kg

DRUGS (20)
  1. CASIRIVIMAB\IMDEVIMAB [Suspect]
     Active Substance: CASIRIVIMAB\IMDEVIMAB
     Indication: COVID-19 treatment
     Dosage: OTHER FREQUENCY : 1-TIME INFUSION;?
     Route: 042
     Dates: start: 20211129, end: 20211129
  2. Glipizide 20 mg PO daily [Concomitant]
  3. Metformin 1000mg PO BID [Concomitant]
  4. Acarbose 100mg PO TID [Concomitant]
  5. Aspirin EC 81mg PO daily [Concomitant]
  6. Simvastatin 80mg PO qhs [Concomitant]
  7. Fish Oil 1400mg PO daily [Concomitant]
  8. Carbidopa/Levodopa 25mg/100mg PO TID [Concomitant]
  9. Donepezil 5mg PO qhs [Concomitant]
  10. Escitalopram 20mg PO daily [Concomitant]
  11. Trazodone 25mg PO qhs [Concomitant]
  12. Melatonin 6mg PO qhs prn insomnia [Concomitant]
  13. Calcium and Vitamin D 600mg/800 units PO daily [Concomitant]
  14. MVI PO daily [Concomitant]
  15. Vitamin C 1000mg PO daily [Concomitant]
  16. Vitamin D 2000 units PO daily [Concomitant]
  17. Ketoconazole 2% shampoo every other day [Concomitant]
  18. Polyvinyl alcohol (artificial tears) ophthalmic 1.4% 1 drop each eye B [Concomitant]
  19. Enoxaparin 40mg SQ daily [Concomitant]
     Dates: start: 20211128
  20. APAP 650mg PO q6 hours prn fever [Concomitant]
     Dates: start: 20211128

REACTIONS (3)
  - Oxygen saturation decreased [None]
  - Positive airway pressure therapy [None]
  - Pulseless electrical activity [None]

NARRATIVE: CASE EVENT DATE: 20211129
